FAERS Safety Report 8938629 (Version 1)
Quarter: 2012Q4

REPORT INFORMATION
  Report Type: 
  Country: NL (occurrence: NL)
  Receive Date: 20121203
  Receipt Date: 20121203
  Transmission Date: 20130627
  Serious: Yes (Other)
  Sender: FDA-Public Use
  Company Number: NL-ELI_LILLY_AND_COMPANY-NL201211007194

PATIENT
  Age: 64 Year
  Sex: Female
  Weight: 65 kg

DRUGS (3)
  1. TIOTROPIUM [Concomitant]
     Indication: ASTHMA
     Dosage: UNK, bid
     Route: 055
     Dates: start: 1987
  2. FORSTEO [Suspect]
     Indication: OSTEOPOROSIS
     Dosage: 20 ug, qd
     Route: 058
     Dates: start: 20120928, end: 20121029
  3. SALMETEROL/FLUTICASONPROPIONAAT [Concomitant]
     Indication: ASTHMA
     Dosage: 1 DF, bid
     Route: 055
     Dates: start: 1987

REACTIONS (2)
  - Fluid retention [Unknown]
  - Arrhythmia [Unknown]
